FAERS Safety Report 4798205-3 (Version None)
Quarter: 2005Q4

REPORT INFORMATION
  Report Type: 
  Country: None (occurrence: None)
  Receive Date: 20051011
  Receipt Date: 20051004
  Transmission Date: 20060501
  Serious: Yes (Death, Other)
  Sender: FDA-Public Use
  Company Number: 163-20785-05060345

PATIENT
  Age: 78 Year
  Sex: Male

DRUGS (6)
  1. THALOMID [Suspect]
     Indication: MULTIPLE MYELOMA
     Dosage: 50-200MG, DAILY, ORAL
     Route: 048
     Dates: start: 20040601, end: 20041101
  2. THALOMID [Suspect]
     Indication: MULTIPLE MYELOMA
     Dosage: 50-200MG, DAILY, ORAL
     Route: 048
     Dates: start: 20041101, end: 20050428
  3. THALOMID [Suspect]
  4. THALOMID [Suspect]
  5. THALOMID [Suspect]
  6. THALOMID [Suspect]

REACTIONS (2)
  - DIALYSIS [None]
  - DISEASE PROGRESSION [None]
